FAERS Safety Report 13858240 (Version 2)
Quarter: 2017Q3

REPORT INFORMATION
  Report Type: Spontaneous
  Country: IN (occurrence: IN)
  Receive Date: 20170811
  Receipt Date: 20170831
  Transmission Date: 20171127
  Serious: Yes (Hospitalization, Other)
  Sender: FDA-Public Use
  Company Number: IN-CIPLA LTD.-2017IN13674

PATIENT

DRUGS (1)
  1. MONTAIR [Suspect]
     Active Substance: MONTELUKAST SODIUM
     Indication: HYPERSENSITIVITY
     Dosage: UNK, RECENTLY RECEIVED BETWEEN END OF JUNE AND FIRST WEEK OF JULY
     Route: 065
     Dates: start: 2017, end: 20170708

REACTIONS (3)
  - Jaundice [Recovered/Resolved]
  - Hypersensitivity [Recovered/Resolved]
  - Typhoid fever [Recovered/Resolved]

NARRATIVE: CASE EVENT DATE: 20170627
